FAERS Safety Report 4278091-0 (Version None)
Quarter: 2004Q1

REPORT INFORMATION
  Report Type: 
  Country: None (occurrence: None)
  Receive Date: 20040121
  Receipt Date: 20040113
  Transmission Date: 20041129
  Serious: Yes (Other)
  Sender: FDA-Public Use
  Company Number: HQWYE395115JAN04

PATIENT

DRUGS (3)
  1. RAPAMUNE [Suspect]
     Indication: IMMUNOSUPPRESSION
  2. TACROLIMUS (TACROLIMUS) [Concomitant]
  3. CAMPATH [Concomitant]

REACTIONS (1)
  - NERVOUS SYSTEM DISORDER [None]
